FAERS Safety Report 23128705 (Version 1)
Quarter: 2023Q4

REPORT INFORMATION
  Report Type: Spontaneous
  Country: US (occurrence: None)
  Receive Date: 20231027
  Receipt Date: 20231027
  Transmission Date: 20240110
  Serious: Yes (Hospitalization)
  Sender: FDA-Public Use
  Company Number: None

PATIENT
  Sex: Male

DRUGS (24)
  1. ENVARSUS XR [Suspect]
     Active Substance: TACROLIMUS
  2. ASPIRIN [Concomitant]
     Active Substance: ASPIRIN
  3. ATORVASTATIN [Concomitant]
     Active Substance: ATORVASTATIN
  4. CHOLESTYRAM [Concomitant]
  5. CLINDAMYCIN [Concomitant]
     Active Substance: CLINDAMYCIN
  6. DOXAZOSIN [Concomitant]
     Active Substance: DOXAZOSIN MESYLATE
  7. ACETAMINOPHEN\HYDROCODONE [Concomitant]
     Active Substance: ACETAMINOPHEN\HYDROCODONE
  8. HYDROXYZINE HYDROCHLORIDE [Concomitant]
     Active Substance: HYDROXYZINE HYDROCHLORIDE
  9. LANTUS [Concomitant]
     Active Substance: INSULIN GLARGINE
  10. METOPROL SUC [Concomitant]
  11. MYCOPHENOLATE MOFETIL [Concomitant]
     Active Substance: MYCOPHENOLATE MOFETIL
  12. MYCOPHENOLIC ACID [Concomitant]
     Active Substance: MYCOPHENOLIC ACID
  13. NOVAREL [Concomitant]
     Active Substance: CHORIOGONADOTROPIN ALFA
  14. NOVOLOG [Concomitant]
     Active Substance: INSULIN ASPART
  15. OXYCODONE [Concomitant]
     Active Substance: OXYCODONE
  16. PRALUENT [Concomitant]
     Active Substance: ALIROCUMAB
  17. PREDNISONE [Concomitant]
     Active Substance: PREDNISONE
  18. SEVELAMER [Concomitant]
     Active Substance: SEVELAMER
  19. SIROLIMUS [Concomitant]
     Active Substance: SIROLIMUS
  20. TACROLIMUS [Concomitant]
     Active Substance: TACROLIMUS
  21. TESTOSTERONE [Concomitant]
     Active Substance: TESTOSTERONE
  22. URSODIOL [Concomitant]
     Active Substance: URSODIOL
  23. VALCYTE [Concomitant]
     Active Substance: VALGANCICLOVIR HYDROCHLORIDE
  24. VELTASSA [Concomitant]
     Active Substance: PATIROMER

REACTIONS (1)
  - Hospitalisation [None]
